FAERS Safety Report 12195747 (Version 2)
Quarter: 2016Q1

REPORT INFORMATION
  Report Type: Report from Study
  Country: SE (occurrence: SE)
  Receive Date: 20160321
  Receipt Date: 20160321
  Transmission Date: 20160526
  Serious: Yes (Hospitalization)
  Sender: FDA-Public Use
  Company Number: SE-ABBVIE-15P-150-1357690-00

PATIENT
  Age: 53 Year
  Sex: Female

DRUGS (1)
  1. DUODOPA [Suspect]
     Active Substance: CARBIDOPA\LEVODOPA
     Indication: PARKINSON^S DISEASE
     Route: 050
     Dates: start: 20141027, end: 20160125

REACTIONS (7)
  - Anaemia [Not Recovered/Not Resolved]
  - Drug ineffective [Unknown]
  - Stoma site inflammation [Recovered/Resolved]
  - Catheter site discharge [Unknown]
  - Stoma site infection [Recovered/Resolved]
  - Stoma site erythema [Unknown]
  - Stoma site hypergranulation [Not Recovered/Not Resolved]

NARRATIVE: CASE EVENT DATE: 20150218
